FAERS Safety Report 21018098 (Version 1)
Quarter: 2022Q2

REPORT INFORMATION
  Report Type: Spontaneous
  Country: US (occurrence: US)
  Receive Date: 20220628
  Receipt Date: 20220628
  Transmission Date: 20220721
  Serious: No
  Sender: FDA-Public Use
  Company Number: US-MYLANLABS-2022M1045102

PATIENT
  Age: 83 Year
  Sex: Male
  Weight: 74.84 kg

DRUGS (1)
  1. NITROGLYCERIN TRANSDERMAL DELIVERY SYSTEM [Suspect]
     Active Substance: NITROGLYCERIN
     Indication: Cardiac disorder
     Dosage: 0.2 MILLIGRAM
     Route: 061

REACTIONS (3)
  - Application site urticaria [Unknown]
  - Application site acne [Unknown]
  - Application site erythema [Unknown]

NARRATIVE: CASE EVENT DATE: 20220401
